FAERS Safety Report 6985331-3 (Version None)
Quarter: 2010Q3

REPORT INFORMATION
  Report Type: 
  Country: None (occurrence: None)
  Receive Date: 20100915
  Receipt Date: 20100824
  Transmission Date: 20110219
  Serious: No
  Sender: FDA-Public Use
  Company Number: US-PFIZER INC-2010107364

PATIENT
  Sex: Male
  Weight: 72.562 kg

DRUGS (2)
  1. LIPITOR [Suspect]
     Indication: BLOOD CHOLESTEROL INCREASED
     Dosage: 10 MG, DAILY
     Route: 048
  2. IBUPROFEN [Concomitant]
     Dosage: UNK

REACTIONS (3)
  - ASTHENIA [None]
  - BLOOD CHOLESTEROL ABNORMAL [None]
  - MYALGIA [None]
